FAERS Safety Report 9931198 (Version 1)
Quarter: 2014Q1

REPORT INFORMATION
  Report Type: Report from Study
  Country: US (occurrence: US)
  Receive Date: 20140228
  Receipt Date: 20140228
  Transmission Date: 20141002
  Serious: Yes (Other)
  Sender: FDA-Public Use
  Company Number: US-ROCHE-1352917

PATIENT
  Sex: Female

DRUGS (4)
  1. AVASTIN [Suspect]
     Indication: RETINAL VEIN OCCLUSION
     Dosage: OD,
     Route: 050
  2. AVASTIN [Suspect]
     Indication: CYSTOID MACULAR OEDEMA
  3. MYDRIACYL [Concomitant]
     Route: 047
  4. NEO-SYNEPHRINE [Concomitant]
     Route: 047

REACTIONS (10)
  - Macular oedema [Unknown]
  - Vision blurred [Unknown]
  - Metamorphopsia [Unknown]
  - Glare [Unknown]
  - Cataract nuclear [Unknown]
  - Vitreous detachment [Unknown]
  - Retinal haemorrhage [Unknown]
  - Visual impairment [Unknown]
  - Vision blurred [Unknown]
  - Off label use [Unknown]
